FAERS Safety Report 23388282 (Version 1)
Quarter: 2024Q1

REPORT INFORMATION
  Report Type: Spontaneous
  Country: NL (occurrence: NL)
  Receive Date: 20240110
  Receipt Date: 20240110
  Transmission Date: 20240410
  Serious: Yes (Other)
  Sender: FDA-Public Use
  Company Number: NL-AMGEN-NLDSP2024000920

PATIENT

DRUGS (3)
  1. BEVACIZUMAB [Suspect]
     Active Substance: BEVACIZUMAB
     Indication: Glioma
     Dosage: 10 MILLIGRAM/KILOGRAM, Q2WK
     Route: 065
  2. IRINOTECAN [Concomitant]
     Active Substance: IRINOTECAN
     Dosage: 125 MILLIGRAM/M2, Q2WK
     Route: 065
  3. VINBLASTINE [Concomitant]
     Active Substance: VINBLASTINE
     Dosage: 3 MILLIGRAM/M2, QWK
     Route: 065

REACTIONS (3)
  - Optic glioma [Unknown]
  - Adverse drug reaction [Unknown]
  - Off label use [Unknown]
